FAERS Safety Report 12351759 (Version 3)
Quarter: 2016Q2

REPORT INFORMATION
  Report Type: Report from Study
  Country: US (occurrence: US)
  Receive Date: 20160510
  Receipt Date: 20160527
  Transmission Date: 20160815
  Serious: Yes (Hospitalization, Other)
  Sender: FDA-Public Use
  Company Number: US-ACTELION-A-US2016-135484

PATIENT
  Age: 65 Year
  Sex: Female
  Weight: 92.52 kg

DRUGS (22)
  1. DEXILANT [Concomitant]
     Active Substance: DEXLANSOPRAZOLE
     Indication: GASTROOESOPHAGEAL REFLUX DISEASE
     Dosage: 60 MG, QOD
     Route: 048
     Dates: start: 20160212
  2. TYVASO [Suspect]
     Active Substance: TREPROSTINIL
     Indication: PULMONARY ARTERIAL HYPERTENSION
     Dosage: 18 MCG, QID
     Route: 055
     Dates: start: 20151106, end: 20160409
  3. METOPROLOL SUCCINATE. [Concomitant]
     Active Substance: METOPROLOL SUCCINATE
     Dosage: 12.5 MG, BID
     Route: 048
  4. ELIQUIS [Concomitant]
     Active Substance: APIXABAN
     Dosage: 10 MG, TID
  5. BERAPROST [Suspect]
     Active Substance: BERAPROST
     Indication: PULMONARY ARTERIAL HYPERTENSION
     Dosage: 30 MCG, QID
     Route: 065
     Dates: start: 20160211, end: 20160408
  6. SERTRALINE [Concomitant]
     Active Substance: SERTRALINE HYDROCHLORIDE
     Dosage: 200 MG, TID
     Route: 048
  7. REMERON [Concomitant]
     Active Substance: MIRTAZAPINE
     Dosage: 15 MG, TID
     Route: 048
  8. VELETRI [Suspect]
     Active Substance: EPOPROSTENOL
     Indication: PULMONARY ARTERIAL HYPERTENSION
     Dosage: 9 NG/KG, PER MIN
     Route: 042
     Dates: start: 20160405
  9. REVATIO [Concomitant]
     Active Substance: SILDENAFIL CITRATE
     Dosage: 60 MG, TID
     Route: 048
  10. FUROSEMIDE. [Concomitant]
     Active Substance: FUROSEMIDE
     Dosage: 40 MG, TID
     Route: 048
  11. LEVOTHROID [Concomitant]
     Active Substance: LEVOTHYROXINE SODIUM
     Dosage: 75 MCG, UNK
     Route: 048
  12. OXYGEN. [Concomitant]
     Active Substance: OXYGEN
     Dosage: 4 L, UNK
  13. VITAMIN D3 [Concomitant]
     Active Substance: CHOLECALCIFEROL
     Dosage: 1000 IU, UNK
  14. AMBIEN [Concomitant]
     Active Substance: ZOLPIDEM TARTRATE
     Dosage: 10 MG, TID
  15. AMLODIPINE BESILATE [Concomitant]
     Active Substance: AMLODIPINE BESYLATE
     Dosage: 2.5 MG, QD
     Route: 048
  16. NEXIUM [Concomitant]
     Active Substance: ESOMEPRAZOLE MAGNESIUM
     Indication: GASTROOESOPHAGEAL REFLUX DISEASE
     Dosage: 40 MG, QD
     Route: 048
  17. POTASSIUM CHLORIDE. [Concomitant]
     Active Substance: POTASSIUM CHLORIDE
     Dosage: 40 MEQ, TID
     Route: 048
  18. REQUIP [Concomitant]
     Active Substance: ROPINIROLE HYDROCHLORIDE
     Dosage: 0.5 MG, TID
     Route: 048
  19. ROBAXIN [Concomitant]
     Active Substance: METHOCARBAMOL
     Dosage: 1500 MG, UNK
     Route: 048
  20. ZYRTEC [Concomitant]
     Active Substance: CETIRIZINE HYDROCHLORIDE
     Dosage: 10 MG, QD
     Route: 048
  21. PERCOCET [Concomitant]
     Active Substance: ACETAMINOPHEN\OXYCODONE HYDROCHLORIDE
     Dosage: 40 MG, TID
  22. PREDNISON [Concomitant]
     Active Substance: PREDNISONE
     Dosage: 20 MG, QD
     Route: 048
     Dates: end: 20160208

REACTIONS (17)
  - Pain [Unknown]
  - Heart rate increased [Unknown]
  - Heart rate irregular [Recovered/Resolved]
  - Catheter site rash [Unknown]
  - Local swelling [Unknown]
  - Contusion [Unknown]
  - Chest pain [Unknown]
  - Atrial fibrillation [Recovered/Resolved]
  - Cardiac pacemaker insertion [Unknown]
  - Haemorrhage [Unknown]
  - Acne [Unknown]
  - Headache [Recovered/Resolved]
  - Tachycardia [Unknown]
  - Flushing [Recovered/Resolved]
  - Ventricular tachycardia [Recovered/Resolved]
  - Dizziness [Recovered/Resolved]
  - Catheter site pruritus [Unknown]

NARRATIVE: CASE EVENT DATE: 20160405
